FAERS Safety Report 6087782-0 (Version None)
Quarter: 2009Q1

REPORT INFORMATION
  Report Type: 
  Country: None (occurrence: None)
  Receive Date: 20090223
  Receipt Date: 20090219
  Transmission Date: 20090719
  Serious: Yes (Death)
  Sender: FDA-Public Use
  Company Number: IT-WYE-H08303209

PATIENT
  Sex: Male
  Weight: 72.2 kg

DRUGS (4)
  1. GEMTUZUMAB OZOGAMICIN [Suspect]
     Indication: ACUTE MYELOID LEUKAEMIA
     Dosage: NOT PROVIDED
     Route: 042
     Dates: start: 20090101
  2. VANCOMYCIN [Concomitant]
     Dosage: NOT PROVIDED
     Route: 065
     Dates: start: 20090213, end: 20090216
  3. CASPOFUNGIN ACETATE [Concomitant]
     Dosage: NOT PROVIDED
     Route: 065
     Dates: start: 20090213, end: 20090216
  4. MEROPENEM [Concomitant]
     Dosage: NOT PROVIDED
     Route: 065
     Dates: start: 20090213, end: 20090216

REACTIONS (2)
  - HYPOTENSION [None]
  - HYPOXIA [None]
